FAERS Safety Report 16289882 (Version 5)
Quarter: 2022Q1

REPORT INFORMATION
  Report Type: Other
  Country: GB (occurrence: GB)
  Receive Date: 20190509
  Receipt Date: 20220111
  Transmission Date: 20220423
  Serious: Yes (Hospitalization, Other)
  Sender: FDA-Public Use
  Company Number: GB-MACLEODS PHARMACEUTICALS US LTD-MAC2019021162

PATIENT

DRUGS (21)
  1. LAMIVUDINE [Suspect]
     Active Substance: LAMIVUDINE
     Indication: HIV infection
     Dosage: 300 MILLIGRAM, QD; 1 COURSE, DURING FIRST TRIMESTER; PATIENT TAKING MEDICINE AT CONCEPTION, EXPOSURE
     Route: 048
     Dates: start: 20090101, end: 20100610
  2. LAMIVUDINE [Suspect]
     Active Substance: LAMIVUDINE
     Indication: Antiretroviral therapy
     Dosage: UNK, EXPOSURE AT FIRST TRIMESTER
     Route: 048
     Dates: start: 20100610
  3. LAMIVUDINE [Suspect]
     Active Substance: LAMIVUDINE
     Dosage: 300 MILLIGRAM, QD; 1 COURSE, DURING FIRST TRIMESTER; PATIENT TAKING MEDICINE AT CONCEPTION, EXPOSURE
     Route: 048
  4. TENOFOVIR DISOPROXIL [Suspect]
     Active Substance: TENOFOVIR DISOPROXIL
     Indication: HIV infection
     Dosage: 300 MILLIGRAM, QD, DENTAL EMULSION, EXPOSURE AT 37 WEEKS
     Route: 048
     Dates: start: 20100610
  5. LOPINAVIR\RITONAVIR [Suspect]
     Active Substance: LOPINAVIR\RITONAVIR
     Indication: HIV infection
     Dosage: UNK; TABLET, EXPOSURE AT 37 WEEKS
     Route: 048
     Dates: start: 20100610
  6. LOPINAVIR\RITONAVIR [Suspect]
     Active Substance: LOPINAVIR\RITONAVIR
     Indication: Antiviral treatment
     Dosage: UNK,  EXPOSURE AT 37 WEEKS
     Route: 065
  7. ZIDOVUDINE [Suspect]
     Active Substance: ZIDOVUDINE
     Indication: HIV infection
     Dosage: 600 MILLIGRAM, QD;1 COURSE, DURING FIRST TRIMESTER
     Route: 048
     Dates: start: 20090110, end: 20100610
  8. ZIDOVUDINE [Suspect]
     Active Substance: ZIDOVUDINE
     Indication: Antiretroviral therapy
     Dosage: 800 MILLIGRAM, QD; 1 COURSE, DURING FIRST TRIMESTER
     Route: 048
     Dates: start: 20100610
  9. VIRAMUNE [Suspect]
     Active Substance: NEVIRAPINE
     Indication: HIV infection
     Dosage: 400 MILLIGRAM, QD; 1 COURSE, DURING FIRST TRIMESTER; PATIENT TAKING MEDICINE AT CONCEPTION
     Route: 048
     Dates: start: 20090101, end: 20100610
  10. VIRAMUNE [Suspect]
     Active Substance: NEVIRAPINE
     Indication: Antiretroviral therapy
  11. VIREAD [Suspect]
     Active Substance: TENOFOVIR DISOPROXIL FUMARATE
     Indication: HIV infection
     Dosage: UNK, EXPOSURE AT 1ST TRIMESTER
     Route: 048
  12. VIREAD [Suspect]
     Active Substance: TENOFOVIR DISOPROXIL FUMARATE
     Indication: Antiretroviral therapy
     Dosage: 300 MG, QD, TAB/CAP, EXPOSURE AT FIRST TRIMESTER
     Route: 048
     Dates: start: 20100610
  13. ISENTRESS [Suspect]
     Active Substance: RALTEGRAVIR POTASSIUM
     Indication: HIV infection
     Dosage: 800 MILLIGRAM, QID, GESTATION PERIOD- 37 WEEKS
     Route: 048
     Dates: start: 20100610
  14. KALETRA [Suspect]
     Active Substance: LOPINAVIR\RITONAVIR
     Indication: HIV infection
     Dosage: UNK, 1 COURSE DURING THIRD TRIMESTER
     Route: 048
  15. KALETRA [Suspect]
     Active Substance: LOPINAVIR\RITONAVIR
     Dosage: UNK
     Route: 048
     Dates: start: 20100610
  16. KALETRA [Suspect]
     Active Substance: LOPINAVIR\RITONAVIR
     Dosage: UNK(1 TRIMESTER)
     Route: 048
     Dates: start: 20100610
  17. KALETRA [Suspect]
     Active Substance: LOPINAVIR\RITONAVIR
     Dosage: UNK(1 TRIMESTER)
     Route: 048
     Dates: start: 20100610
  18. LOPINAVIR\RITONAVIR [Suspect]
     Active Substance: LOPINAVIR\RITONAVIR
     Indication: Antiviral treatment
     Dosage: UNK, EXPOSED AT 37 WEEKS, PATIENT WAS NOT TAKING MEDICINE AT CONCEPTION
     Route: 048
     Dates: start: 20100610
  19. LOPINAVIR\RITONAVIR [Suspect]
     Active Substance: LOPINAVIR\RITONAVIR
     Indication: HIV infection
     Dosage: UNK, EXPOSED AT 37 WEEKS, PATIENT WAS NOT TAKING MEDICINE AT CONCEPTION
     Route: 065
  20. RALTEGRAVIR [Suspect]
     Active Substance: RALTEGRAVIR
     Indication: HIV infection
     Dosage: 1 DOSAGE FORM, QD, EXPOSURE AT 37 WEEKS OF GESTATION
     Route: 048
     Dates: start: 20100610
  21. RALTEGRAVIR [Suspect]
     Active Substance: RALTEGRAVIR
     Dosage: 800 MILLIGRAM, QD
     Route: 048
     Dates: start: 20100610

REACTIONS (5)
  - Caesarean section [Unknown]
  - Hepatic cytolysis [Unknown]
  - Alanine aminotransferase increased [Unknown]
  - Aspartate aminotransferase increased [Unknown]
  - Maternal exposure during pregnancy [Recovered/Resolved]

NARRATIVE: CASE EVENT DATE: 20100629
